FAERS Safety Report 7755983-9 (Version None)
Quarter: 2011Q3

REPORT INFORMATION
  Report Type: 
  Country: None (occurrence: None)
  Receive Date: 20110915
  Receipt Date: 20110915
  Transmission Date: 20111222
  Serious: Yes (Life-Threatening, Hospitalization)
  Sender: FDA-Public Use
  Company Number: None

PATIENT
  Age: 80 Year
  Sex: Male
  Weight: 86.4 kg

DRUGS (1)
  1. IOVERSOL [Suspect]
     Indication: ANGIOGRAM
     Dosage: 80 ML ONCE IV
     Route: 042
     Dates: start: 20110614, end: 20110614

REACTIONS (4)
  - RESPIRATORY ARREST [None]
  - HYPOTENSION [None]
  - UNRESPONSIVE TO STIMULI [None]
  - PULSE ABSENT [None]
